FAERS Safety Report 14231773 (Version 1)
Quarter: 2017Q4

REPORT INFORMATION
  Report Type: Spontaneous
  Country: US (occurrence: US)
  Receive Date: 20171128
  Receipt Date: 20171128
  Transmission Date: 20180321
  Serious: No
  Sender: FDA-Public Use
  Company Number: US-TARO-2017TAR00572

PATIENT
  Sex: Male
  Weight: 74.83 kg

DRUGS (1)
  1. CARBAMAZEPINE. [Suspect]
     Active Substance: CARBAMAZEPINE
     Indication: MIGRAINE
     Dosage: UNK
     Route: 048
     Dates: start: 2016

REACTIONS (2)
  - Medication residue present [Unknown]
  - Off label use [Unknown]

NARRATIVE: CASE EVENT DATE: 2016
